FAERS Safety Report 15837895 (Version 1)
Quarter: 2019Q1

REPORT INFORMATION
  Report Type: Spontaneous
  Country: PT (occurrence: PT)
  Receive Date: 20190117
  Receipt Date: 20190117
  Transmission Date: 20190417
  Serious: Yes (Other)
  Sender: FDA-Public Use
  Company Number: PT-LANNETT COMPANY, INC.-PT-2019LAN000069

PATIENT
  Age: 48 Year
  Sex: Female

DRUGS (3)
  1. CLOMIPRAMINE [Concomitant]
     Active Substance: CLOMIPRAMINE
     Indication: DEPRESSION
     Dosage: 75 MG, QD
  2. BROMAZEPAM [Concomitant]
     Active Substance: BROMAZEPAM
     Indication: DEPRESSION
     Dosage: 6 MG, TID
  3. ARIPIPRAZOLE. [Suspect]
     Active Substance: ARIPIPRAZOLE
     Indication: DEPRESSION
     Dosage: 10 MG, QD (8 WEEKS AT ADMISSION TIME)
     Route: 065

REACTIONS (1)
  - Haemolytic anaemia [Recovered/Resolved]
